FAERS Safety Report 4286320-2 (Version None)
Quarter: 2004Q1

REPORT INFORMATION
  Report Type: 
  Country: None (occurrence: None)
  Receive Date: 20040116
  Receipt Date: 20030909
  Transmission Date: 20041129
  Serious: Yes (Other)
  Sender: FDA-Public Use
  Company Number: 346707

PATIENT
  Age: 70 Year
  Sex: Female

DRUGS (2)
  1. VERSED [Suspect]
     Indication: PREMEDICATION
     Dosage: 2 MG 2 PER ONE DOSE
     Dates: start: 20020115
  2. DEMEROL [Concomitant]

REACTIONS (3)
  - COMA [None]
  - OVERDOSE [None]
  - RESPIRATORY DEPRESSION [None]
